FAERS Safety Report 5592658-9 (Version None)
Quarter: 2008Q1

REPORT INFORMATION
  Report Type: 
  Country: None (occurrence: None)
  Receive Date: 20080115
  Receipt Date: 20080109
  Transmission Date: 20080703
  Serious: Yes (Death, Hospitalization)
  Sender: FDA-Public Use
  Company Number: CA-BOEHRINGER INGELHEIM PHARMACEUTICALS, INC.-2008-CN-00010CN

PATIENT
  Sex: Male
  Weight: 70 kg

DRUGS (1)
  1. CATAPRES [Suspect]
     Indication: ANALGESIA
     Route: 037
     Dates: start: 20071001

REACTIONS (1)
  - RENAL CANCER METASTATIC [None]
